FAERS Safety Report 7652950-0 (Version None)
Quarter: 2011Q3

REPORT INFORMATION
  Report Type: 
  Country: None (occurrence: None)
  Receive Date: 20110803
  Receipt Date: 20110721
  Transmission Date: 20111222
  Serious: Yes (Hospitalization, Other)
  Sender: FDA-Public Use
  Company Number: US-ROCHE-727340

PATIENT
  Sex: Female
  Weight: 40.8 kg

DRUGS (2)
  1. ACCUTANE [Suspect]
     Indication: ACNE
     Route: 065
     Dates: start: 19820601, end: 19821201
  2. ACCUTANE [Suspect]
     Route: 065
     Dates: start: 19820101, end: 19840101

REACTIONS (9)
  - INTESTINAL HAEMORRHAGE [None]
  - GASTROINTESTINAL INJURY [None]
  - CROHN'S DISEASE [None]
  - IRRITABLE BOWEL SYNDROME [None]
  - DRUG HYPERSENSITIVITY [None]
  - DEPRESSION [None]
  - ARTHRITIS [None]
  - INTESTINAL OBSTRUCTION [None]
  - INFLAMMATORY BOWEL DISEASE [None]
